FAERS Safety Report 7112593-4 (Version None)
Quarter: 2010Q4

REPORT INFORMATION
  Report Type: 
  Country: None (occurrence: None)
  Receive Date: 20101119
  Receipt Date: 20100331
  Transmission Date: 20110411
  Serious: No
  Sender: FDA-Public Use
  Company Number: US-TEVA-230067USA

PATIENT
  Sex: Female
  Weight: 60.836 kg

DRUGS (5)
  1. ALBUTEROL SULFATE AUTOHALER [Suspect]
     Dosage: USED TWO TIMES, TWO PUFFS EACH TIME
     Route: 055
     Dates: start: 20100330, end: 20100331
  2. SALBUTAMOL [Concomitant]
  3. AMITRIPTYLINE HYDROCHLORIDE [Concomitant]
  4. DULOXETINE HYDROCHLORIDE [Concomitant]
  5. OMEPRAZOLE [Concomitant]

REACTIONS (4)
  - COUGH [None]
  - DYSPNOEA [None]
  - RETCHING [None]
  - WHEEZING [None]
